FAERS Safety Report 6378471-3 (Version None)
Quarter: 2009Q3

REPORT INFORMATION
  Report Type: 
  Country: None (occurrence: None)
  Receive Date: 20090928
  Receipt Date: 20090923
  Transmission Date: 20100115
  Serious: Yes (Hospitalization)
  Sender: FDA-Public Use
  Company Number: FR-BIOGENIDEC-2009BI028588

PATIENT
  Age: 36 Year
  Sex: Female

DRUGS (6)
  1. TYSABRI [Suspect]
     Indication: MULTIPLE SCLEROSIS
     Route: 042
     Dates: start: 20070704, end: 20090711
  2. DITROPAN [Concomitant]
     Route: 048
  3. XANAX [Concomitant]
  4. LAROXYL [Concomitant]
     Route: 048
  5. NOCTAMIDE [Concomitant]
     Route: 048
  6. SEROPLEX [Concomitant]
     Route: 048

REACTIONS (2)
  - MULTIPLE SCLEROSIS RELAPSE [None]
  - PROGRESSIVE MULTIFOCAL LEUKOENCEPHALOPATHY [None]
